FAERS Safety Report 7606487-5 (Version None)
Quarter: 2011Q3

REPORT INFORMATION
  Report Type: 
  Country: None (occurrence: None)
  Receive Date: 20110713
  Receipt Date: 20090731
  Transmission Date: 20111222
  Serious: Yes (Other)
  Sender: FDA-Public Use
  Company Number: US-BAYER-200928769NA

PATIENT
  Age: 63 Year
  Sex: Female
  Weight: 76 kg

DRUGS (18)
  1. CRESTOR [Concomitant]
     Dosage: 10 MG, QD
  2. NORVASC [Concomitant]
     Dosage: 10 MG, QD
  3. RED BLOOD CELLS [Concomitant]
     Dosage: 8 U, ONCE
     Route: 042
     Dates: start: 20040602
  4. CONTRAST MEDIA [Concomitant]
     Indication: ARTERIOGRAM CORONARY
  5. TRASYLOL [Suspect]
     Dosage: 200ML PUMP PRIME DOSE
     Dates: start: 20040602, end: 20040602
  6. TRASYLOL [Suspect]
     Dosage: 200 ML LOADING DOSE
     Route: 042
     Dates: start: 20040602, end: 20040602
  7. ACETYLSALICYLIC ACID SRT [Concomitant]
     Dosage: 81 MG, QD
  8. HEPARIN [Concomitant]
     Dosage: UNK
     Dates: start: 20040602, end: 20040602
  9. CONTRAST MEDIA [Concomitant]
     Indication: RENAL ARTERY STENT PLACEMENT
     Dosage: UNK
     Dates: start: 20040602
  10. CONTRAST MEDIA [Concomitant]
     Indication: CATHETERISATION CARDIAC
     Dosage: UNK
     Dates: start: 20040602
  11. TRASYLOL [Suspect]
     Indication: CORONARY ARTERY BYPASS
     Dosage: 1 ML TEST DOSE
     Route: 042
     Dates: start: 20040602, end: 20040602
  12. PLAVIX [Concomitant]
     Dosage: 75 MG, QD
  13. METOPROLOL SUCCINATE [Concomitant]
     Dosage: 50 MG, QD
  14. LISINOPRIL [Concomitant]
     Dosage: 5 MG, QD
  15. PROPOFOL [Concomitant]
     Dosage: UNK
     Dates: start: 20040602, end: 20040602
  16. VERSED [Concomitant]
     Dosage: UNK
     Dates: start: 20040602, end: 20040602
  17. PROTAMINE SULFATE [Concomitant]
     Dosage: UNK
     Dates: start: 20040602, end: 20040602
  18. LOZOL [Concomitant]
     Dosage: 1.25 MG, QD

REACTIONS (11)
  - RENAL INJURY [None]
  - RENAL FAILURE [None]
  - PAIN [None]
  - STRESS [None]
  - ANHEDONIA [None]
  - INJURY [None]
  - ANXIETY [None]
  - EMOTIONAL DISTRESS [None]
  - RENAL IMPAIRMENT [None]
  - UNEVALUABLE EVENT [None]
  - FEAR [None]
